FAERS Safety Report 11415416 (Version 2)
Quarter: 2015Q4

REPORT INFORMATION
  Report Type: Report from Study
  Country: NL (occurrence: NL)
  Receive Date: 20150825
  Receipt Date: 20151002
  Transmission Date: 20160304
  Serious: Yes (Death, Other)
  Sender: FDA-Public Use
  Company Number: PHHY2015NL102000

PATIENT
  Age: 79 Year
  Sex: Male

DRUGS (5)
  1. METOPROLOL [Concomitant]
     Active Substance: METOPROLOL
     Indication: PRODUCT USED FOR UNKNOWN INDICATION
     Dosage: 50 MG, 1DD1
     Route: 065
  2. ZOMETA [Suspect]
     Active Substance: ZOLEDRONIC ACID
     Indication: HORMONE-DEPENDENT PROSTATE CANCER
     Dosage: 4 MG/100ML (ONCE EVERY 4 WEEKS)
     Route: 042
     Dates: start: 2014, end: 2015
  3. HYDROCHLORIC ACID [Concomitant]
     Active Substance: HYDROCHLORIC ACID
     Indication: PRODUCT USED FOR UNKNOWN INDICATION
     Dosage: 25 MG, 1DD1
     Route: 065
  4. DIOVAN [Concomitant]
     Active Substance: VALSARTAN
     Indication: PRODUCT USED FOR UNKNOWN INDICATION
     Dosage: 80 MG, 1DD1
     Route: 065
  5. OMEPRAZOLE. [Concomitant]
     Active Substance: OMEPRAZOLE
     Indication: PRODUCT USED FOR UNKNOWN INDICATION
     Dosage: 20 MG, 1DD1
     Route: 065

REACTIONS (6)
  - Death [Fatal]
  - Dyspnoea [Unknown]
  - Malignant neoplasm progression [Unknown]
  - Terminal state [Unknown]
  - Malaise [Unknown]
  - Hormone-dependent prostate cancer [Unknown]

NARRATIVE: CASE EVENT DATE: 20150701
